FAERS Safety Report 23448864 (Version 2)
Quarter: 2024Q1

REPORT INFORMATION
  Report Type: Other
  Country: DE (occurrence: None)
  Receive Date: 20240128
  Receipt Date: 20240227
  Transmission Date: 20240410
  Serious: Yes (Hospitalization)
  Sender: FDA-Public Use
  Company Number: DE-ROCHE-3493606

PATIENT
  Age: 66 Year
  Sex: Female

DRUGS (19)
  1. OCRELIZUMAB [Suspect]
     Active Substance: OCRELIZUMAB
     Indication: Relapsing multiple sclerosis
     Route: 042
     Dates: start: 20220121
  2. OCRELIZUMAB [Suspect]
     Active Substance: OCRELIZUMAB
     Route: 042
     Dates: start: 20220725
  3. LEVOTHYROXINE SODIUM [Concomitant]
     Active Substance: LEVOTHYROXINE SODIUM
     Dosage: DOSE: 50 DECREASING?DOSE FREQUENCY: QD (EVERY DAY)
     Route: 048
     Dates: start: 2015
  4. MIRTAZAPINE [Concomitant]
     Active Substance: MIRTAZAPINE
     Dosage: DOSE: 15?DOSE FREQUENCY: OTHER
     Route: 048
     Dates: start: 2013
  5. CHOLECALCIFEROL [Concomitant]
     Active Substance: CHOLECALCIFEROL
     Dosage: DOSE: 20000?DOSE FREQUENCY: QS (EVERY WEEK)
     Route: 048
     Dates: start: 20150114
  6. SUMATRIPTAN [Concomitant]
     Active Substance: SUMATRIPTAN
     Dosage: DOSE: 50?DOSE FREQUENCY: PRN (AS NEEDED)
     Route: 048
     Dates: start: 2003
  7. SPASMEX (GERMANY) [Concomitant]
     Dosage: DOSE: 15?DOSE FREQUENCY: PRN (AS NEEDED)
     Route: 048
     Dates: start: 202307, end: 202307
  8. DARIFENACIN HYDROBROMIDE [Concomitant]
     Active Substance: DARIFENACIN HYDROBROMIDE
     Dosage: DOSE: 7.5 DECREASING?DOSE FREQUENCY: QD (EVERY DAY)
     Route: 048
     Dates: start: 202308, end: 202310
  9. PREDNISOLONE [Concomitant]
     Active Substance: PREDNISOLONE
     Route: 042
     Dates: start: 20220204, end: 20220204
  10. PREDNISOLONE [Concomitant]
     Active Substance: PREDNISOLONE
     Route: 042
     Dates: start: 20220725, end: 20220725
  11. PREDNISOLONE [Concomitant]
     Active Substance: PREDNISOLONE
     Route: 042
     Dates: start: 20230130, end: 20230130
  12. PREDNISOLONE [Concomitant]
     Active Substance: PREDNISOLONE
     Route: 042
     Dates: start: 20230731, end: 20230731
  13. PREDNISOLONE [Concomitant]
     Active Substance: PREDNISOLONE
     Route: 042
     Dates: start: 20240129, end: 20240129
  14. EBASTINE [Concomitant]
     Active Substance: EBASTINE
     Dosage: DOSE FREQUENCY: TAKEN OVER 3 DAYS, TWICE A DAY, START 1 DAY BEFORE INFUSION
     Route: 048
     Dates: start: 20220120, end: 20220122
  15. EBASTINE [Concomitant]
     Active Substance: EBASTINE
     Dosage: DOSE FREQUENCY: TAKE OVER 3 DAYS, TWICE A DAY, START 1 DAY BEFORE INFUSION
     Route: 048
     Dates: start: 20220203, end: 20220205
  16. EBASTINE [Concomitant]
     Active Substance: EBASTINE
     Dosage: DOSE FREQUENCY: 2 TIMES A DAY FOR 3 DAYS, START 1 DAY BEFORE INFUSION
     Route: 048
     Dates: start: 20220724, end: 20220726
  17. EBASTINE [Concomitant]
     Active Substance: EBASTINE
     Dosage: DOSE FREQUENCY: 2 TIMES A DAY FOR 3 DAYS, START 1 DAY BEFORE INFUSION
     Route: 048
     Dates: start: 20230129, end: 20230131
  18. EBASTINE [Concomitant]
     Active Substance: EBASTINE
     Dosage: DOSE FREQUENCY: 2 TIMES A DAY FOR 3 DAYS, START 1 DAY BEFORE INFUION
     Route: 048
     Dates: start: 20230730, end: 20230801
  19. EBASTINE [Concomitant]
     Active Substance: EBASTINE
     Dosage: DOSE FREQUENCY: 2 TIMES A DAY FOR 3 DAYS, START 1 DAY BEFORE INFUION
     Route: 048
     Dates: start: 20240128, end: 20240130

REACTIONS (2)
  - COVID-19 [Recovered/Resolved]
  - Urinary retention [Recovered/Resolved]

NARRATIVE: CASE EVENT DATE: 20231101
